FAERS Safety Report 7501832-3 (Version None)
Quarter: 2011Q2

REPORT INFORMATION
  Report Type: 
  Country: None (occurrence: None)
  Receive Date: 20110525
  Receipt Date: 20110513
  Transmission Date: 20111010
  Serious: Yes (Hospitalization, Other)
  Sender: FDA-Public Use
  Company Number: US-BAYER-2011-041521

PATIENT
  Age: 16 Year
  Sex: Female

DRUGS (1)
  1. MIRENA [Suspect]
     Dosage: 20 ?G, UNK
     Route: 015
     Dates: start: 20110119, end: 20110512

REACTIONS (7)
  - PAIN [None]
  - WHITE BLOOD CELL COUNT INCREASED [None]
  - UTERINE SYNECHIAE [None]
  - VAGINITIS BACTERIAL [None]
  - PELVIC INFLAMMATORY DISEASE [None]
  - CHLAMYDIA TEST POSITIVE [None]
  - PREGNANCY WITH CONTRACEPTIVE DEVICE [None]
